FAERS Safety Report 19052454 (Version 1)
Quarter: 2021Q1

REPORT INFORMATION
  Report Type: Spontaneous
  Country: NL (occurrence: NL)
  Receive Date: 20210324
  Receipt Date: 20210324
  Transmission Date: 20210420
  Serious: Yes (Hospitalization, Other)
  Sender: FDA-Public Use
  Company Number: NL-ADVANZ PHARMA -202103002238

PATIENT

DRUGS (1)
  1. PILOCARPINE. [Suspect]
     Active Substance: PILOCARPINE
     Indication: DRY MOUTH
     Dosage: 5 MG TABLET  AT A DOSE OF 60
     Route: 048

REACTIONS (10)
  - Respiratory distress [Recovered/Resolved]
  - Respiratory failure [Recovered/Resolved]
  - Wheezing [Recovered/Resolved]
  - Hypoxia [Recovered/Resolved]
  - Overdose [Unknown]
  - Hypokalaemia [Recovered/Resolved]
  - Hyperhidrosis [Recovered/Resolved]
  - Lactic acidosis [Recovered/Resolved]
  - Increased bronchial secretion [Recovered/Resolved]
  - Cholinergic syndrome [Recovered/Resolved]
